FAERS Safety Report 7684030-2 (Version None)
Quarter: 2011Q3

REPORT INFORMATION
  Report Type: 
  Country: None (occurrence: None)
  Receive Date: 20110815
  Receipt Date: 20110808
  Transmission Date: 20111222
  Serious: Yes (Hospitalization, Other)
  Sender: FDA-Public Use
  Company Number: JP-CEPHALON-2011003093

PATIENT
  Sex: Female
  Weight: 50 kg

DRUGS (13)
  1. BENDAMUSTINE HCL [Suspect]
     Route: 042
     Dates: end: 20110517
  2. ACYCLOVIR [Concomitant]
  3. BENDAMUSTINE HCL [Suspect]
     Indication: B-CELL LYMPHOMA
     Route: 042
     Dates: start: 20101216, end: 20101217
  4. EZETIMIBE [Concomitant]
  5. BENDAMUSTINE HCL [Suspect]
     Route: 042
     Dates: start: 20110210, end: 20110211
  6. RITUXIMAB [Suspect]
     Indication: B-CELL LYMPHOMA
     Route: 042
     Dates: start: 20101215, end: 20101215
  7. ALLOPURINOL [Concomitant]
  8. FAMOTIDINE [Concomitant]
  9. SULFAMETHOXAZOLE AND TRIMETHOPRIM [Concomitant]
  10. GRANISETRON HYDROCHLORIDE [Concomitant]
  11. RITUXIMAB [Suspect]
     Route: 042
     Dates: start: 20110209, end: 20110209
  12. BENDAMUSTINE HCL [Suspect]
     Route: 042
     Dates: start: 20110113, end: 20110114
  13. RITUXIMAB [Suspect]
     Route: 042
     Dates: start: 20110112, end: 20110112

REACTIONS (4)
  - NAUSEA [None]
  - NEUTROPHIL COUNT DECREASED [None]
  - CYTOMEGALOVIRUS INFECTION [None]
  - LYMPHOCYTE COUNT DECREASED [None]
